FAERS Safety Report 25008304 (Version 1)
Quarter: 2025Q1

REPORT INFORMATION
  Report Type: Spontaneous
  Country: US (occurrence: US)
  Receive Date: 20250225
  Receipt Date: 20250225
  Transmission Date: 20250409
  Serious: No
  Sender: XELLIA PHARMACEUTICALS
  Company Number: US-Axellia-005375

PATIENT
  Sex: Male

DRUGS (16)
  1. VANCOMYCIN [Suspect]
     Active Substance: VANCOMYCIN
     Indication: Product used for unknown indication
  2. ANASTROZOLE [Concomitant]
     Active Substance: ANASTROZOLE
  3. ASMANEX [Concomitant]
     Active Substance: MOMETASONE FUROATE
  4. BACTRIM [Concomitant]
     Active Substance: SULFAMETHOXAZOLE\TRIMETHOPRIM
  5. CELEXA [Concomitant]
     Active Substance: CITALOPRAM HYDROBROMIDE
  6. CIALIS [Concomitant]
     Active Substance: TADALAFIL
  7. METFORMIN [Concomitant]
     Active Substance: METFORMIN HYDROCHLORIDE
  8. SITAGLIPTIN [Concomitant]
     Active Substance: SITAGLIPTIN
  9. TRIAMCINOLONE [Concomitant]
     Active Substance: TRIAMCINOLONE
  10. SILDENAFIL [Concomitant]
     Active Substance: SILDENAFIL
  11. VARDENAFIL [Concomitant]
     Active Substance: VARDENAFIL HYDROCHLORIDE
  12. OXCARBAZEPINE [Concomitant]
     Active Substance: OXCARBAZEPINE
  13. EPINEPHRINE [Concomitant]
     Active Substance: EPINEPHRINE
  14. PREDNISONE [Concomitant]
     Active Substance: PREDNISONE
  15. CARISOPRODOL [Concomitant]
     Active Substance: CARISOPRODOL
  16. AMMONIUM LACTATE [Concomitant]
     Active Substance: AMMONIUM LACTATE

REACTIONS (1)
  - Dizziness [Unknown]
